FAERS Safety Report 9981113 (Version 1)
Quarter: 2014Q1

REPORT INFORMATION
  Report Type: Spontaneous
  Country: US (occurrence: None)
  Receive Date: 20140306
  Receipt Date: 20140306
  Transmission Date: 20141002
  Serious: Yes (Other)
  Sender: FDA-Public Use
  Company Number: None

PATIENT
  Age: 73 Year
  Sex: Male
  Weight: 75.75 kg

DRUGS (1)
  1. DOXYCYCLINE MONOHYDRATE [Suspect]
     Indication: RASH
     Dosage: 250 MG PER 500 ML OR 1 G - 100 MG CAPS; 1 CAPSULE
     Route: 048
     Dates: start: 20140204, end: 20140215

REACTIONS (1)
  - Gynaecomastia [None]
